FAERS Safety Report 7886029-X (Version None)
Quarter: 2011Q4

REPORT INFORMATION
  Report Type: 
  Country: None (occurrence: None)
  Receive Date: 20111102
  Receipt Date: 20110706
  Transmission Date: 20120403
  Serious: No
  Sender: FDA-Public Use
  Company Number: US-AMGEN-USASP2011018458

PATIENT
  Age: 55 Year
  Sex: Female

DRUGS (2)
  1. ENBREL [Suspect]
     Indication: RHEUMATOID ARTHRITIS
     Dosage: 50 MG, QWK
     Dates: start: 20110324, end: 20110601
  2. HUMIRA [Concomitant]

REACTIONS (7)
  - INJECTION SITE INDURATION [None]
  - TENSION HEADACHE [None]
  - DIARRHOEA [None]
  - DRUG INEFFECTIVE [None]
  - INJECTION SITE ERYTHEMA [None]
  - INJECTION SITE WARMTH [None]
  - CHEST PAIN [None]
